FAERS Safety Report 6236695-X (Version None)
Quarter: 2009Q2

REPORT INFORMATION
  Report Type: 
  Country: None (occurrence: None)
  Receive Date: 20090619
  Receipt Date: 20090312
  Transmission Date: 20091009
  Serious: No
  Sender: FDA-Public Use
  Company Number: US-ASTRAZENECA-2009UW06492

PATIENT
  Age: 75 Year
  Sex: Female
  Weight: 63.5 kg

DRUGS (6)
  1. ATACAND HCT [Suspect]
     Dosage: 32/12.5
     Route: 048
  2. FOSAMAX [Concomitant]
  3. LIPITOR [Concomitant]
  4. LEVOXAL [Concomitant]
  5. AMLODIPINE [Concomitant]
  6. METOPROLOL SUCCINATE [Concomitant]

REACTIONS (2)
  - DIZZINESS [None]
  - NASAL CONGESTION [None]
